FAERS Safety Report 22126550 (Version 3)
Quarter: 2023Q2

REPORT INFORMATION
  Report Type: Report from Study
  Country: US (occurrence: US)
  Receive Date: 20230322
  Receipt Date: 20230606
  Transmission Date: 20230722
  Serious: No
  Sender: FDA-Public Use
  Company Number: US-002147023-NVSC2023US060170

PATIENT
  Age: 37 Year
  Sex: Male

DRUGS (2)
  1. KESIMPTA [Suspect]
     Active Substance: OFATUMUMAB
     Indication: Multiple sclerosis
     Dosage: 20 MG, QMO
     Route: 058
     Dates: start: 20230310
  2. KESIMPTA [Suspect]
     Active Substance: OFATUMUMAB
     Dosage: 20 MG, QMO
     Route: 058
     Dates: start: 20230509

REACTIONS (13)
  - Brain fog [Recovering/Resolving]
  - Somnolence [Recovering/Resolving]
  - Muscular weakness [Recovering/Resolving]
  - Musculoskeletal stiffness [Recovering/Resolving]
  - Gait inability [Recovering/Resolving]
  - Feeling hot [Recovering/Resolving]
  - Oral herpes [Recovering/Resolving]
  - Stomatitis [Recovering/Resolving]
  - Tooth abscess [Not Recovered/Not Resolved]
  - Cheilitis [Recovering/Resolving]
  - Headache [Recovering/Resolving]
  - Chills [Recovering/Resolving]
  - Nausea [Recovering/Resolving]

NARRATIVE: CASE EVENT DATE: 20230310
